FAERS Safety Report 10486865 (Version 1)
Quarter: 2014Q4

REPORT INFORMATION
  Report Type: Spontaneous
  Country: US (occurrence: US)
  Receive Date: 20141001
  Receipt Date: 20141001
  Transmission Date: 20150528
  Serious: No
  Sender: FDA-Public Use
  Company Number: US-BAYER-2014-145672

PATIENT
  Sex: Male

DRUGS (2)
  1. ALEVE [Suspect]
     Active Substance: NAPROXEN SODIUM
     Indication: ANTIINFLAMMATORY THERAPY
     Dosage: 2 AT NIGHT,2 IN THE MORNING AND 2 IN THE EVENING, ONCE
     Route: 048
     Dates: start: 20140925, end: 20140925
  2. ALEVE [Suspect]
     Active Substance: NAPROXEN SODIUM
     Indication: ANTIINFLAMMATORY THERAPY
     Dosage: 2 DF, PRN
     Route: 048
     Dates: end: 20140925

REACTIONS (4)
  - Blood pressure increased [Not Recovered/Not Resolved]
  - Incorrect dose administered [None]
  - Intentional product misuse [None]
  - Flushing [Not Recovered/Not Resolved]

NARRATIVE: CASE EVENT DATE: 20140925
